FAERS Safety Report 5632724-2 (Version None)
Quarter: 2008Q1

REPORT INFORMATION
  Report Type: 
  Country: None (occurrence: None)
  Receive Date: 20080221
  Receipt Date: 20080213
  Transmission Date: 20080703
  Serious: Yes (Other)
  Sender: FDA-Public Use
  Company Number: US-JNJFOC-20080203279

PATIENT
  Age: 87 Year
  Sex: Female
  Weight: 56.25 kg

DRUGS (9)
  1. TYLENOL (CAPLET) [Suspect]
     Route: 048
  2. TYLENOL (CAPLET) [Suspect]
     Indication: SPONDYLITIS
     Route: 048
  3. ASPIRIN [Concomitant]
     Indication: CARDIAC DISORDER
  4. GLUCOSAMINE [Concomitant]
     Indication: ARTHRITIS
  5. LASIX [Concomitant]
     Indication: DIURETIC THERAPY
  6. ATENOLOL [Concomitant]
     Indication: CORONARY ARTERIAL STENT INSERTION
  7. PLAVIX [Concomitant]
     Indication: CORONARY ARTERIAL STENT INSERTION
  8. HYALURONIC ACID [Concomitant]
     Indication: ARTHROPATHY
  9. LIPHAM [Concomitant]
     Indication: DYSPEPSIA

REACTIONS (1)
  - CHEST DISCOMFORT [None]
